FAERS Safety Report 8461341-4 (Version None)
Quarter: 2012Q2

REPORT INFORMATION
  Report Type: 
  Country: None (occurrence: None)
  Receive Date: 20120625
  Receipt Date: 20120618
  Transmission Date: 20120825
  Serious: Yes (Death)
  Sender: FDA-Public Use
  Company Number: DE-JNJFOC-20120608513

PATIENT
  Sex: Male

DRUGS (2)
  1. GLIANIMON [Suspect]
     Indication: PRODUCT USED FOR UNKNOWN INDICATION
     Route: 051
  2. HALDOL [Suspect]
     Indication: PRODUCT USED FOR UNKNOWN INDICATION
     Route: 065

REACTIONS (3)
  - CIRCULATORY COLLAPSE [None]
  - NERVOUS SYSTEM DISORDER [None]
  - CARDIOVASCULAR INSUFFICIENCY [None]
